FAERS Safety Report 7658460-9 (Version None)
Quarter: 2011Q3

REPORT INFORMATION
  Report Type: 
  Country: None (occurrence: None)
  Receive Date: 20110805
  Receipt Date: 20110803
  Transmission Date: 20111222
  Serious: No
  Sender: FDA-Public Use
  Company Number: US-PFIZER INC-2011178314

PATIENT
  Sex: Male
  Weight: 89 kg

DRUGS (5)
  1. LIPITOR [Suspect]
     Indication: MYOCARDIAL INFARCTION
     Dosage: 80 MG, UNK
  2. LIPITOR [Suspect]
     Indication: CORONARY ARTERY BYPASS
     Dosage: 40 MG, UNK
     Dates: start: 20110802
  3. CARDURA [Concomitant]
     Indication: URINARY RETENTION
     Dosage: 4 MG, TWO TABLETS
  4. ACETYLSALICYLIC ACID [Concomitant]
     Dosage: 81 MG, 1X/DAY
  5. LIPITOR [Suspect]
     Indication: BLOOD CHOLESTEROL INCREASED
     Dosage: 40 MG, UNK

REACTIONS (2)
  - BLOOD CREATINE PHOSPHOKINASE INCREASED [None]
  - BLOOD CHOLESTEROL INCREASED [None]
